FAERS Safety Report 7036827-X (Version None)
Quarter: 2010Q4

REPORT INFORMATION
  Report Type: 
  Country: None (occurrence: None)
  Receive Date: 20101011
  Receipt Date: 20101004
  Transmission Date: 20110411
  Serious: Yes (Hospitalization, Other)
  Sender: FDA-Public Use
  Company Number: US-ELI_LILLY_AND_COMPANY-US201005000626

PATIENT
  Sex: Male
  Weight: 102.4 kg

DRUGS (2)
  1. BYETTA [Suspect]
     Dosage: UNK, UNKNOWN
     Route: 058
     Dates: start: 20070401, end: 20080101
  2. CALCIUM [Concomitant]
     Indication: BLOOD CALCIUM DECREASED

REACTIONS (4)
  - BLOOD CREATININE INCREASED [None]
  - OFF LABEL USE [None]
  - PANCREATITIS [None]
  - RENAL FAILURE [None]
